FAERS Safety Report 7867435-6 (Version None)
Quarter: 2011Q4

REPORT INFORMATION
  Report Type: 
  Country: None (occurrence: None)
  Receive Date: 20111028
  Receipt Date: 20111021
  Transmission Date: 20120403
  Serious: Yes (Other)
  Sender: FDA-Public Use
  Company Number: FR-MERCK-1107FRA00055

PATIENT
  Age: 24 Year
  Sex: Female

DRUGS (5)
  1. ETHAMBUTOL HYDROCHLORIDE [Concomitant]
     Indication: TUBERCULOSIS
     Route: 048
     Dates: start: 20110325, end: 20110529
  2. ISONIAZID AND RIFAMPIN [Concomitant]
     Indication: TUBERCULOSIS
     Route: 048
     Dates: start: 20110530
  3. ISENTRESS [Suspect]
     Indication: HIV INFECTION
     Route: 048
     Dates: start: 20110407
  4. LAMIVUDINE AND ZIDOVUDINE [Concomitant]
     Indication: HIV INFECTION
     Route: 048
     Dates: start: 20110407
  5. ISONIAZID AND PYRAZINAMIDE AND RIFAMPIN [Concomitant]
     Indication: TUBERCULOSIS
     Route: 048
     Dates: start: 20110325, end: 20110529

REACTIONS (3)
  - PRE-ECLAMPSIA [None]
  - VIRAL LOAD INCREASED [None]
  - MATERNAL EXPOSURE DURING PREGNANCY [None]
